FAERS Safety Report 6108544-1 (Version None)
Quarter: 2009Q1

REPORT INFORMATION
  Report Type: 
  Country: None (occurrence: None)
  Receive Date: 20090309
  Receipt Date: 20090226
  Transmission Date: 20090719
  Serious: Yes (Hospitalization, Other)
  Sender: FDA-Public Use
  Company Number: PHHY2008FR30657

PATIENT
  Sex: Male
  Weight: 68 kg

DRUGS (2)
  1. GLEEVEC [Suspect]
     Indication: CHRONIC MYELOID LEUKAEMIA
     Dosage: 400 MG, QD
     Dates: start: 20070401
  2. DECAPEPTYL                              /SCH/ [Concomitant]
     Indication: PROSTATE CANCER
     Dosage: UNK
     Dates: start: 20060101

REACTIONS (3)
  - METASTASES TO LYMPH NODES [None]
  - METASTASES TO PERITONEUM [None]
  - PROSTATE CANCER METASTATIC [None]
